FAERS Safety Report 13287879 (Version 1)
Quarter: 2017Q1

REPORT INFORMATION
  Report Type: Spontaneous
  Country: US (occurrence: US)
  Receive Date: 20170302
  Receipt Date: 20170302
  Transmission Date: 20170428
  Serious: Yes (Hospitalization, Other)
  Sender: FDA-Public Use
  Company Number: US-LUPIN PHARMACEUTICALS INC.-E2B_00007469

PATIENT
  Sex: Male
  Weight: 103.06 kg

DRUGS (2)
  1. LEVETIRACETAM TABLETS USP 500MG [Suspect]
     Active Substance: LEVETIRACETAM
     Route: 048
     Dates: start: 20160901, end: 20160901
  2. LEVETIRACETAM TABLETS USP 500MG [Suspect]
     Active Substance: LEVETIRACETAM
     Indication: SEIZURE
     Route: 048
     Dates: start: 20140103, end: 20140103

REACTIONS (4)
  - Mental status changes [Recovered/Resolved]
  - Amnesia [Recovered/Resolved]
  - Accidental exposure to product [Unknown]
  - Feeling abnormal [Recovered/Resolved]
